FAERS Safety Report 11835642 (Version 2)
Quarter: 2016Q1

REPORT INFORMATION
  Report Type: Report from Study
  Country: CA (occurrence: CA)
  Receive Date: 20151215
  Receipt Date: 20160104
  Transmission Date: 20160525
  Serious: Yes (Other)
  Sender: FDA-Public Use
  Company Number: CA-ROCHE-1666975

PATIENT
  Age: 51 Year
  Sex: Female
  Weight: 58 kg

DRUGS (11)
  1. LEFLUNOMID [Concomitant]
     Active Substance: LEFLUNOMIDE
  2. SULFASALAZINE. [Concomitant]
     Active Substance: SULFASALAZINE
  3. ARAVA [Concomitant]
     Active Substance: LEFLUNOMIDE
  4. FLEXERIL (CANADA) [Concomitant]
  5. NEURONTIN [Concomitant]
     Active Substance: GABAPENTIN
  6. GABAPENTIN. [Concomitant]
     Active Substance: GABAPENTIN
  7. CYMBALTA [Concomitant]
     Active Substance: DULOXETINE HYDROCHLORIDE
  8. TRAMCET [Concomitant]
     Active Substance: ACETAMINOPHEN\TRAMADOL
  9. MONOCOR [Concomitant]
     Active Substance: BISOPROLOL FUMARATE
  10. ACTEMRA [Suspect]
     Active Substance: TOCILIZUMAB
     Indication: RHEUMATOID ARTHRITIS
     Dosage: 8MG/KG ONCE PER MONTH
     Route: 042
     Dates: start: 20151110
  11. PLAQUENIL [Concomitant]
     Active Substance: HYDROXYCHLOROQUINE SULFATE

REACTIONS (10)
  - Rhinorrhoea [Recovering/Resolving]
  - Influenza [Recovering/Resolving]
  - Chills [Unknown]
  - Subcutaneous abscess [Recovered/Resolved]
  - Renal mass [Not Recovered/Not Resolved]
  - Respiratory tract infection [Not Recovered/Not Resolved]
  - Diverticulitis [Not Recovered/Not Resolved]
  - Sputum discoloured [Unknown]
  - Abdominal pain upper [Not Recovered/Not Resolved]
  - Pain [Unknown]

NARRATIVE: CASE EVENT DATE: 20151113
